FAERS Safety Report 9239417 (Version 1)
Quarter: 2013Q2

REPORT INFORMATION
  Report Type: Spontaneous
  Country: US (occurrence: US)
  Receive Date: 20130418
  Receipt Date: 20130418
  Transmission Date: 20140414
  Serious: No
  Sender: FDA-Public Use
  Company Number: US-009507513-1304USA006911

PATIENT
  Age: 2 Year
  Sex: Male
  Weight: 18.14 kg

DRUGS (1)
  1. CLARITIN CHEWABLE TABLETS [Suspect]
     Indication: SEASONAL ALLERGY
     Dosage: 5 MG, BID
     Route: 048
     Dates: start: 20130326, end: 20130326

REACTIONS (1)
  - Accidental overdose [Unknown]
